FAERS Safety Report 7639935-5 (Version None)
Quarter: 2011Q3

REPORT INFORMATION
  Report Type: 
  Country: None (occurrence: None)
  Receive Date: 20110727
  Receipt Date: 20110721
  Transmission Date: 20111222
  Serious: Yes (Death)
  Sender: FDA-Public Use
  Company Number: IT-CELGENEUS-083-20785-11072417

PATIENT
  Sex: Female

DRUGS (2)
  1. THALIDOMIDE [Suspect]
     Indication: MYELOFIBROSIS
     Dosage: 50 MILLIGRAM
     Route: 048
     Dates: start: 20101201, end: 20110401
  2. COUMADIN [Concomitant]
     Route: 065

REACTIONS (1)
  - INTESTINAL ISCHAEMIA [None]
